FAERS Safety Report 9841424 (Version 1)
Quarter: 2013Q4

REPORT INFORMATION
  Report Type: Spontaneous
  Country: US (occurrence: None)
  Receive Date: 20131219
  Receipt Date: 20131219
  Transmission Date: 20140711
  Serious: Yes (Death)
  Sender: FDA-Public Use
  Company Number: 163-20785-12103627

PATIENT
  Age: 19 Year
  Sex: Male

DRUGS (1)
  1. THALOMID [Suspect]
     Indication: SOFT TISSUE CANCER
     Route: 048
     Dates: start: 201210, end: 20121120

REACTIONS (2)
  - Peripheral nerve sheath tumour malignant [None]
  - Disease progression [None]
